FAERS Safety Report 9153654 (Version 1)
Quarter: 2013Q1

REPORT INFORMATION
  Report Type: Spontaneous
  Country: US (occurrence: None)
  Receive Date: 20130206
  Receipt Date: 20130206
  Transmission Date: 20140127
  Serious: Yes (Hospitalization)
  Sender: FDA-Public Use
  Company Number: 201301065

PATIENT
  Age: 62 Year
  Sex: Male
  Weight: 104.33 kg

DRUGS (3)
  1. TESTIM (TESTOSTERONE) [Suspect]
     Indication: BLOOD TESTOSTERONE DECREASED
     Route: 062
     Dates: start: 201101, end: 201112
  2. PRAVASTATIN (PRAVASTATIN) [Concomitant]
  3. TERAZOSIN (TERAZOSIN) [Concomitant]

REACTIONS (2)
  - Cardiac flutter [None]
  - Atrial fibrillation [None]
